FAERS Safety Report 4869144-4 (Version None)
Quarter: 2005Q4

REPORT INFORMATION
  Report Type: 
  Country: None (occurrence: None)
  Receive Date: 20051228
  Receipt Date: 20051228
  Transmission Date: 20060501
  Serious: Yes (Life-Threatening, Hospitalization)
  Sender: FDA-Public Use
  Company Number: None

PATIENT
  Age: 64 Year
  Sex: Male
  Weight: 72.7 kg

DRUGS (1)
  1. PROPOFOL [Suspect]
     Indication: SEDATION
     Dates: start: 20051215

REACTIONS (4)
  - HYPOXIA [None]
  - INTUBATION COMPLICATION [None]
  - LARYNGOSPASM [None]
  - OXYGEN SATURATION DECREASED [None]
